FAERS Safety Report 7463127-6 (Version None)
Quarter: 2011Q2

REPORT INFORMATION
  Report Type: 
  Country: None (occurrence: None)
  Receive Date: 20110506
  Receipt Date: 20110427
  Transmission Date: 20111010
  Serious: Yes (Hospitalization, Other)
  Sender: FDA-Public Use
  Company Number: JP-SANOFI-AVENTIS-2009SA004289

PATIENT
  Age: 81 Year
  Sex: Male
  Weight: 63 kg

DRUGS (13)
  1. PREDNISOLONE [Concomitant]
     Indication: PROSTATE CANCER
     Route: 048
     Dates: start: 20090518
  2. LEUPLIN [Concomitant]
     Indication: PROSTATE CANCER
     Route: 058
     Dates: start: 20071106
  3. TAKEPRON [Concomitant]
     Route: 048
  4. TAXOTERE [Suspect]
     Indication: PROSTATE CANCER
     Dates: start: 20090522, end: 20090522
  5. TAXOTERE [Suspect]
     Dates: start: 20091221, end: 20091221
  6. TAXOTERE [Suspect]
     Dates: start: 20100208, end: 20100208
  7. TAXOTERE [Suspect]
     Dates: start: 20100507, end: 20100507
  8. TAXOTERE [Suspect]
     Dates: start: 20100324, end: 20100324
  9. ANTIANDROGENS [Concomitant]
     Dates: end: 20080903
  10. TAXOTERE [Suspect]
     Dates: start: 20091111, end: 20091111
  11. TAXOTERE [Suspect]
     Dates: start: 20090703, end: 20090703
  12. TAXOTERE [Suspect]
     Dates: start: 20090930, end: 20090930
  13. TAXOTERE [Suspect]
     Dates: start: 20090812, end: 20090812

REACTIONS (2)
  - CEREBRAL HAEMORRHAGE [None]
  - MALAISE [None]
